FAERS Safety Report 19234226 (Version 2)
Quarter: 2021Q2

REPORT INFORMATION
  Report Type: Spontaneous
  Country: JP (occurrence: JP)
  Receive Date: 20210508
  Receipt Date: 20210525
  Transmission Date: 20210717
  Serious: Yes (Death, Other)
  Sender: FDA-Public Use
  Company Number: JP-JNJFOC-20210512716

PATIENT
  Age: 3 Decade

DRUGS (1)
  1. CANAGLIFLOZIN [Suspect]
     Active Substance: CANAGLIFLOZIN
     Indication: PRODUCT USED FOR UNKNOWN INDICATION
     Route: 048

REACTIONS (3)
  - Death [Fatal]
  - Multiple organ dysfunction syndrome [Unknown]
  - Ketoacidosis [Unknown]
